FAERS Safety Report 26217751 (Version 1)
Quarter: 2025Q4

REPORT INFORMATION
  Report Type: Spontaneous
  Country: ID (occurrence: ID)
  Receive Date: 20251231
  Receipt Date: 20251231
  Transmission Date: 20260118
  Serious: Yes (Other)
  Sender: SANDOZ
  Company Number: ID-002147023-NVSC2025ID197160

PATIENT
  Age: 37 Year
  Sex: Female

DRUGS (3)
  1. MYCOPHENOLATE MOFETIL [Suspect]
     Active Substance: MYCOPHENOLATE MOFETIL
     Indication: Immunosuppression
     Dosage: UNK
  2. ELTROMBOPAG [Suspect]
     Active Substance: ELTROMBOPAG
     Indication: Immune thrombocytopenia
     Dosage: UNK
  3. METHYLPREDNISOLONE [Suspect]
     Active Substance: METHYLPREDNISOLONE
     Indication: Immunosuppression
     Dosage: UNK

REACTIONS (10)
  - Subdural haemorrhage [Unknown]
  - Vision blurred [Unknown]
  - Papilloedema [Unknown]
  - Gaze palsy [Unknown]
  - Headache [Unknown]
  - Thrombocytopenia [Unknown]
  - Diplopia [Unknown]
  - Gingival bleeding [Unknown]
  - Haematoma [Unknown]
  - Conjunctival haemorrhage [Unknown]
